FAERS Safety Report 8548737-7 (Version None)
Quarter: 2012Q3

REPORT INFORMATION
  Report Type: 
  Country: None (occurrence: None)
  Receive Date: 20120730
  Receipt Date: 20120724
  Transmission Date: 20120928
  Serious: Yes (Other)
  Sender: FDA-Public Use
  Company Number: PHEH2012US014541

PATIENT
  Sex: Female

DRUGS (1)
  1. ZOMETA [Suspect]

REACTIONS (5)
  - NERVE COMPRESSION [None]
  - LUMBAR VERTEBRAL FRACTURE [None]
  - BACK PAIN [None]
  - BONE CANCER METASTATIC [None]
  - TOOTH DISORDER [None]
